FAERS Safety Report 11761014 (Version 2)
Quarter: 2018Q2

REPORT INFORMATION
  Report Type: Spontaneous
  Country: FR (occurrence: FR)
  Receive Date: 20151120
  Receipt Date: 20180502
  Transmission Date: 20180711
  Serious: Yes (Life-Threatening)
  Sender: FDA-Public Use
  Company Number: FR-ASTRAZENECA-2015SF11390

PATIENT
  Age: 24681 Day
  Sex: Female

DRUGS (12)
  1. DEROXAT [Suspect]
     Active Substance: PAROXETINE HYDROCHLORIDE
     Route: 048
     Dates: start: 2013, end: 20151024
  2. GLUCOPHAGE [Concomitant]
     Active Substance: METFORMIN HYDROCHLORIDE
     Dates: end: 20151024
  3. DAFALGAN [Concomitant]
     Active Substance: ACETAMINOPHEN
     Dates: end: 20151024
  4. INEXIUM [Suspect]
     Active Substance: ESOMEPRAZOLE
     Route: 048
     Dates: start: 2012, end: 20151024
  5. VAXIGRIP [Suspect]
     Active Substance: INFLUENZA VIRUS VACCINE
     Indication: INFLUENZA IMMUNISATION
     Dosage: 1.0DF ONCE/SINGLE ADMINISTRATION
     Route: 030
     Dates: start: 20151020, end: 20151020
  6. OXYCONTIN [Suspect]
     Active Substance: OXYCODONE HYDROCHLORIDE
     Indication: PROCEDURAL PAIN
     Route: 048
     Dates: start: 20150923, end: 20151014
  7. IMOVANE [Suspect]
     Active Substance: ZOPICLONE
     Route: 048
     Dates: end: 20151024
  8. DIFFU K [Concomitant]
     Active Substance: POTASSIUM CHLORIDE
     Dates: end: 20151024
  9. SULFARLEM [Concomitant]
     Active Substance: ANETHOLTRITHION
  10. CARBOMER [Concomitant]
     Active Substance: CARBOMER
     Dates: end: 20151024
  11. PRETERAX [Concomitant]
     Active Substance: INDAPAMIDE\PERINDOPRIL
     Dates: end: 20151024
  12. GAVISCON [Concomitant]
     Active Substance: ALUMINUM HYDROXIDE\MAGNESIUM CARBONATE
     Dates: end: 20151024

REACTIONS (2)
  - Rhabdomyolysis [Recovered/Resolved]
  - Myositis [Not Recovered/Not Resolved]

NARRATIVE: CASE EVENT DATE: 20151020
